FAERS Safety Report 7548430-3 (Version None)
Quarter: 2011Q2

REPORT INFORMATION
  Report Type: 
  Country: None (occurrence: None)
  Receive Date: 20110615
  Receipt Date: 20110606
  Transmission Date: 20111010
  Serious: Yes (Other)
  Sender: FDA-Public Use
  Company Number: DE-JNJFOC-20110409548

PATIENT
  Sex: Male
  Weight: 85 kg

DRUGS (5)
  1. BIPRETERAX [Concomitant]
     Indication: HYPERTENSION
     Route: 065
  2. GALANTAMINE HYDROBROMIDE [Suspect]
     Route: 048
     Dates: start: 20110421, end: 20110421
  3. GALANTAMINE HYDROBROMIDE [Suspect]
     Indication: DEMENTIA
     Route: 048
     Dates: end: 20110420
  4. GALANTAMINE HYDROBROMIDE [Suspect]
     Route: 048
     Dates: start: 20110423
  5. ESCITALOPRAM [Concomitant]
     Indication: DEPRESSED MOOD
     Route: 065

REACTIONS (2)
  - INCORRECT DOSE ADMINISTERED [None]
  - NO ADVERSE EVENT [None]
